FAERS Safety Report 6368375-4 (Version None)
Quarter: 2009Q3

REPORT INFORMATION
  Report Type: 
  Country: None (occurrence: None)
  Receive Date: 20090922
  Receipt Date: 20090821
  Transmission Date: 20100115
  Serious: No
  Sender: FDA-Public Use
  Company Number: US-BAYER-200913692BCC

PATIENT
  Sex: Female
  Weight: 51 kg

DRUGS (6)
  1. ALEVE [Suspect]
     Indication: DYSMENORRHOEA
     Dosage: AS USED: 440 MG  UNIT DOSE: 220 MG
     Route: 065
     Dates: start: 19990101
  2. CITRACAL MAXIMUM CAPLETS + D [Suspect]
     Indication: VITAMIN SUPPLEMENTATION
     Dosage: TOTAL DAILY DOSE: 2 DF  UNIT DOSE: 1 DF
     Route: 048
     Dates: end: 20090820
  3. SYNTHROID [Concomitant]
     Route: 065
  4. ONE-A-DAY WOMEN'S [Concomitant]
     Route: 065
  5. NATURE MADE MAGNESIUM [Concomitant]
     Dosage: TOTAL DAILY DOSE: 2 DF  UNIT DOSE: 1 DF
     Route: 065
  6. NATURE MADE VITAMIN [Concomitant]
     Dosage: TOTAL DAILY DOSE: 2 DF  UNIT DOSE: 1 DF
     Route: 065

REACTIONS (2)
  - DYSMENORRHOEA [None]
  - FOREIGN BODY TRAUMA [None]
